FAERS Safety Report 6620335-1 (Version None)
Quarter: 2010Q1

REPORT INFORMATION
  Report Type: 
  Country: None (occurrence: None)
  Receive Date: 20100308
  Receipt Date: 20100308
  Transmission Date: 20100710
  Serious: Yes (Disabling, Other)
  Sender: FDA-Public Use
  Company Number: None

PATIENT
  Age: 60 Year
  Sex: Female
  Weight: 86.4 kg

DRUGS (1)
  1. SEROQUEL [Suspect]
     Indication: DEPRESSION
     Dosage: 50 MG AT NIGHT ONCE A NIGHT, 2 WKS IN DEC. THINKING RESUMES, STILL HAVING UNCONTROLLED MOVES

REACTIONS (5)
  - BALANCE DISORDER [None]
  - BIPOLAR DISORDER [None]
  - DYSSTASIA [None]
  - GRIP STRENGTH DECREASED [None]
  - MENTAL IMPAIRMENT [None]
